FAERS Safety Report 24778241 (Version 1)
Quarter: 2024Q4

REPORT INFORMATION
  Report Type: Spontaneous
  Country: US (occurrence: US)
  Receive Date: 20241226
  Receipt Date: 20241226
  Transmission Date: 20250114
  Serious: Yes (Death, Other)
  Sender: PURDUE
  Company Number: US-PURDUE PHARMA-USA-2024-0314273

PATIENT
  Age: 23 Year
  Sex: Male

DRUGS (2)
  1. OXYCODONE HYDROCHLORIDE [Suspect]
     Active Substance: OXYCODONE HYDROCHLORIDE
     Indication: Product used for unknown indication
     Dosage: JUNE 25, 8 PILLS; JUNE 27, 8 PILLS; JUNE 29, 6 PILLS; JUNE 30, 3; JULY 1, 12; JULY 2, AN UNKNOWN NUM
     Route: 065
     Dates: start: 20220624, end: 20221128
  2. FENTANYL [Suspect]
     Active Substance: FENTANYL
     Indication: Product used for unknown indication
     Dosage: JUNE 25, 8 PILLS; JUNE 27, 8 PILLS; JUNE 29, 6 PILLS; JUNE 30, 3; JULY 1, 12; JULY 2, AN UNKNOWN NUM
     Route: 065
     Dates: start: 20220624, end: 20221128

REACTIONS (7)
  - Counterfeit product administered [Fatal]
  - Victim of homicide [Fatal]
  - Toxicity to various agents [Fatal]
  - Loss of consciousness [Unknown]
  - Drug dependence [Unknown]
  - Drug abuse [Unknown]
  - Drug withdrawal syndrome [Unknown]

NARRATIVE: CASE EVENT DATE: 20220101
